FAERS Safety Report 7619039-8 (Version None)
Quarter: 2011Q3

REPORT INFORMATION
  Report Type: 
  Country: None (occurrence: None)
  Receive Date: 20110718
  Receipt Date: 20110712
  Transmission Date: 20111222
  Serious: Yes (Other)
  Sender: FDA-Public Use
  Company Number: NZ-BAXTER-2011BH022673

PATIENT

DRUGS (2)
  1. SODIUM CHLORIDE 0.9% IN PLASTIC CONTAINER [Suspect]
     Indication: MEDICATION DILUTION
     Route: 065
  2. BEVACIZUMAB [Suspect]
     Indication: NEOPLASM
     Route: 065

REACTIONS (1)
  - ENDOPHTHALMITIS [None]
